FAERS Safety Report 4956883-X (Version None)
Quarter: 2006Q1

REPORT INFORMATION
  Report Type: 
  Country: None (occurrence: None)
  Receive Date: 20060127
  Receipt Date: 20041209
  Transmission Date: 20060701
  Serious: Yes (Death)
  Sender: FDA-Public Use
  Company Number: 04-12-1719

PATIENT
  Age: 83 Year
  Sex: Female

DRUGS (5)
  1. CLOZAPINE [Suspect]
     Indication: HALLUCINATION
     Dosage: 75 MG QHS, ORAL
     Route: 048
     Dates: start: 19990601, end: 20041119
  2. CLOZAPINE [Suspect]
     Indication: PARKINSON'S DISEASE
     Dosage: 75 MG QHS, ORAL
     Route: 048
     Dates: start: 19990601, end: 20041119
  3. KLONOPIN [Concomitant]
  4. DARVOCET [Concomitant]
  5. SINEMET-CR (SINEMET) [Concomitant]

REACTIONS (1)
  - PRE-EXISTING DISEASE [None]
